FAERS Safety Report 9059590 (Version 1)
Quarter: 2013Q1

REPORT INFORMATION
  Report Type: Spontaneous
  Country: US (occurrence: None)
  Receive Date: 20130206
  Receipt Date: 20130206
  Transmission Date: 20140127
  Serious: Yes (Life-Threatening, Hospitalization)
  Sender: FDA-Public Use
  Company Number: None

PATIENT
  Sex: Female
  Weight: 60.78 kg

DRUGS (6)
  1. XARELTO [Suspect]
     Indication: ATRIAL FIBRILLATION
     Dosage: 20 MG DAILY PO
     Route: 048
  2. ALPRAZOLAM [Concomitant]
  3. LEVOTHYROXINE [Concomitant]
  4. NEXIUM [Concomitant]
  5. EXELON [Concomitant]
  6. METOPROLOL SUCCINATE [Concomitant]

REACTIONS (6)
  - Head injury [None]
  - Fall [None]
  - Speech disorder [None]
  - Subdural haematoma [None]
  - Hemiparesis [None]
  - Haemorrhage [None]
